FAERS Safety Report 10341937 (Version 17)
Quarter: 2015Q4

REPORT INFORMATION
  Report Type: Report from Study
  Country: FR (occurrence: FR)
  Receive Date: 20140725
  Receipt Date: 20151029
  Transmission Date: 20160304
  Serious: Yes (Other)
  Sender: FDA-Public Use
  Company Number: FR-JNJFOC-20140313606

PATIENT
  Sex: Male
  Weight: 71 kg

DRUGS (47)
  1. TMC207 [Suspect]
     Active Substance: BEDAQUILINE
     Indication: TUBERCULOSIS
     Route: 048
     Dates: start: 20131028
  2. TIORFAN [Concomitant]
     Active Substance: RACECADOTRIL
  3. FOLINORAL [Concomitant]
     Active Substance: LEUCOVORIN CALCIUM
     Route: 065
  4. TMC207 [Suspect]
     Active Substance: BEDAQUILINE
     Indication: TUBERCULOSIS
     Route: 048
     Dates: start: 20150210
  5. CALCIUM AND VITAMIN D [Concomitant]
     Active Substance: CALCIUM\VITAMIN D
     Route: 065
  6. TMC207 [Suspect]
     Active Substance: BEDAQUILINE
     Indication: TUBERCULOSIS
     Route: 048
     Dates: start: 20141218
  7. PASER [Concomitant]
     Active Substance: AMINOSALICYLIC ACID
     Indication: TUBERCULOSIS
  8. IZILOX [Concomitant]
     Active Substance: MOXIFLOXACIN HYDROCHLORIDE
     Indication: TUBERCULOSIS
  9. TRECATOR [Concomitant]
     Active Substance: ETHIONAMIDE
  10. LYRICA [Concomitant]
     Active Substance: PREGABALIN
     Route: 065
  11. LYRICA [Concomitant]
     Active Substance: PREGABALIN
     Route: 065
  12. CALCIUM AND VITAMIN D [Concomitant]
     Active Substance: CALCIUM\VITAMIN D
     Route: 065
  13. AMIKLIN [Concomitant]
     Active Substance: AMIKACIN SULFATE
     Indication: TUBERCULOSIS
     Route: 042
  14. PIRILENE [Concomitant]
     Active Substance: PYRAZINAMIDE
     Indication: TUBERCULOSIS
  15. IMIPENEM [Concomitant]
     Active Substance: IMIPENEM
  16. PASER [Concomitant]
     Active Substance: AMINOSALICYLIC ACID
     Indication: TUBERCULOSIS
  17. LYRICA [Concomitant]
     Active Substance: PREGABALIN
     Route: 065
  18. ZYVOXID [Suspect]
     Active Substance: LINEZOLID
     Indication: TUBERCULOSIS
  19. PIRILENE [Concomitant]
     Active Substance: PYRAZINAMIDE
     Indication: TUBERCULOSIS
  20. AUGMENTIN [Concomitant]
     Active Substance: AMOXICILLIN\CLAVULANATE POTASSIUM
     Indication: TUBERCULOSIS
     Route: 042
  21. INEXIUM [Concomitant]
     Active Substance: ESOMEPRAZOLE
  22. BECILAN [Concomitant]
     Active Substance: PYRIDOXINE
     Route: 065
  23. TIENAM [Concomitant]
     Active Substance: CILASTATIN SODIUM\IMIPENEM
     Indication: TUBERCULOSIS
     Route: 042
  24. IZILOX [Concomitant]
     Active Substance: MOXIFLOXACIN HYDROCHLORIDE
     Indication: TUBERCULOSIS
  25. LYRICA [Concomitant]
     Active Substance: PREGABALIN
     Route: 065
  26. LYRICA [Concomitant]
     Active Substance: PREGABALIN
     Route: 065
  27. PRINCI-B [Concomitant]
  28. VITAMIN B6 [Concomitant]
     Active Substance: PYRIDOXINE HYDROCHLORIDE
  29. CYCLOSERINE. [Concomitant]
     Active Substance: CYCLOSERINE
     Indication: TUBERCULOSIS
  30. PIRILENE [Concomitant]
     Active Substance: PYRAZINAMIDE
     Indication: TUBERCULOSIS
  31. PASER [Concomitant]
     Active Substance: AMINOSALICYLIC ACID
     Indication: TUBERCULOSIS
  32. ACUPAN [Concomitant]
     Active Substance: NEFOPAM HYDROCHLORIDE
  33. SPASFON [Concomitant]
     Active Substance: PHLOROGLUCINOL
     Route: 054
  34. IMODIUM [Concomitant]
     Active Substance: LOPERAMIDE HYDROCHLORIDE
     Route: 065
  35. CACIT D3 [Concomitant]
     Active Substance: CALCIUM\CHOLECALCIFEROL
     Route: 065
  36. TMC207 [Suspect]
     Active Substance: BEDAQUILINE
     Indication: TUBERCULOSIS
     Route: 048
     Dates: start: 20131001
  37. CYCLOSERINE. [Concomitant]
     Active Substance: CYCLOSERINE
     Indication: TUBERCULOSIS
  38. IMIPENEM [Concomitant]
     Active Substance: IMIPENEM
  39. PASER [Concomitant]
     Active Substance: AMINOSALICYLIC ACID
     Indication: TUBERCULOSIS
  40. BECILAN [Concomitant]
     Active Substance: PYRIDOXINE
     Route: 065
  41. BECILAN [Concomitant]
     Active Substance: PYRIDOXINE
     Route: 065
  42. VITAMIN B1 AND B6 [Concomitant]
     Active Substance: PYRIDOXINE HYDROCHLORIDE\THIAMINE HYDROCHLORIDE
  43. IZILOX [Concomitant]
     Active Substance: MOXIFLOXACIN HYDROCHLORIDE
     Indication: TUBERCULOSIS
  44. FOLINORAL [Concomitant]
     Active Substance: LEUCOVORIN CALCIUM
     Route: 065
  45. DIFFU K 600 [Concomitant]
     Route: 065
  46. AMIKLIN [Concomitant]
     Active Substance: AMIKACIN SULFATE
     Indication: TUBERCULOSIS
     Route: 042
     Dates: end: 20141120
  47. AUGMENTIN [Concomitant]
     Active Substance: AMOXICILLIN\CLAVULANATE POTASSIUM
     Indication: TUBERCULOSIS
     Route: 042

REACTIONS (4)
  - Inappropriate schedule of drug administration [Unknown]
  - Electrocardiogram QT prolonged [Recovered/Resolved]
  - Neuropathy peripheral [Unknown]
  - Tuberculosis [Unknown]
